FAERS Safety Report 12787187 (Version 2)
Quarter: 2016Q4

REPORT INFORMATION
  Report Type: Report from Study
  Country: AT (occurrence: AT)
  Receive Date: 20160927
  Receipt Date: 20161005
  Transmission Date: 20170207
  Serious: Yes (Hospitalization)
  Sender: FDA-Public Use
  Company Number: AT-ASTRAZENECA-2016SF01129

PATIENT
  Age: 635 Month
  Sex: Male
  Weight: 75 kg

DRUGS (5)
  1. BRILIQUE [Suspect]
     Active Substance: TICAGRELOR
     Indication: ACUTE CORONARY SYNDROME
     Route: 048
     Dates: start: 20120317, end: 201204
  2. LISINOPRIL. [Concomitant]
     Active Substance: LISINOPRIL
     Indication: ACUTE CORONARY SYNDROME
     Dosage: 5 MG, 1-0-1/2 TABLETS DAILY
     Dates: start: 20120320
  3. SIMVASTATIN. [Concomitant]
     Active Substance: SIMVASTATIN
     Indication: ACUTE CORONARY SYNDROME
     Dates: start: 20120320
  4. ASPIRIN. [Concomitant]
     Active Substance: ASPIRIN
     Indication: ACUTE CORONARY SYNDROME
     Dates: start: 20120320
  5. METOPROLOL. [Concomitant]
     Active Substance: METOPROLOL
     Indication: ACUTE CORONARY SYNDROME
     Dates: start: 20120320

REACTIONS (2)
  - Cough [Recovered/Resolved]
  - Nocturnal dyspnoea [Recovered/Resolved]

NARRATIVE: CASE EVENT DATE: 201203
